FAERS Safety Report 7589062-0 (Version None)
Quarter: 2011Q3

REPORT INFORMATION
  Report Type: 
  Country: None (occurrence: None)
  Receive Date: 20110705
  Receipt Date: 20110624
  Transmission Date: 20111222
  Serious: Yes (Other)
  Sender: FDA-Public Use
  Company Number: US-AMGEN-USASP2011032535

PATIENT
  Age: 45 Year
  Sex: Female

DRUGS (1)
  1. ENBREL [Suspect]
     Indication: RHEUMATOID ARTHRITIS
     Dosage: 50 MG, QWK
     Dates: start: 20020101

REACTIONS (10)
  - BACK INJURY [None]
  - LIGAMENT RUPTURE [None]
  - IMPAIRED HEALING [None]
  - NECK INJURY [None]
  - ROAD TRAFFIC ACCIDENT [None]
  - MUSCLE STRAIN [None]
  - MUSCLE SPASMS [None]
  - EAR HAEMORRHAGE [None]
  - TYMPANIC MEMBRANE PERFORATION [None]
  - VERTIGO [None]
